FAERS Safety Report 8414792-8 (Version None)
Quarter: 2012Q2

REPORT INFORMATION
  Report Type: 
  Country: None (occurrence: None)
  Receive Date: 20120606
  Receipt Date: 20120529
  Transmission Date: 20120825
  Serious: Yes (Hospitalization)
  Sender: FDA-Public Use
  Company Number: US-BIOGENIDEC-2012BI014928

PATIENT
  Age: 55 Year
  Sex: Female
  Weight: 82 kg

DRUGS (27)
  1. PROZAC [Concomitant]
  2. CHANTIX [Concomitant]
     Route: 048
  3. COMBIVENT [Concomitant]
     Route: 055
  4. SPIRIVA [Concomitant]
     Route: 055
  5. ZOLOFT [Concomitant]
     Route: 048
  6. NAPROSYN [Concomitant]
     Route: 048
  7. CALCIUM [Concomitant]
     Route: 048
  8. ADVAIR DISKUS 100/50 [Concomitant]
     Route: 055
  9. ADVAIR DISKUS 100/50 [Concomitant]
     Route: 055
  10. ZIAC [Concomitant]
     Route: 048
  11. PEPCID [Concomitant]
     Route: 048
  12. TYSABRI [Suspect]
     Indication: MULTIPLE SCLEROSIS
     Route: 042
     Dates: start: 20081114, end: 20100208
  13. ALBUTEROL [Concomitant]
     Indication: DYSPNOEA
     Route: 055
  14. IPRATROPIUM BROMIDE [Concomitant]
     Indication: DYSPNOEA
  15. TRIAMCINOLONE [Concomitant]
     Indication: PSORIASIS
     Route: 061
  16. LEVOCETIRIZINE DIHYDROCHLORIDE [Concomitant]
     Indication: MULTIPLE ALLERGIES
     Route: 048
  17. LIPITOR [Concomitant]
     Route: 048
  18. ASPIRIN [Concomitant]
     Route: 048
  19. MULTI-VITAMIN [Concomitant]
     Route: 048
  20. BACLOFEN [Concomitant]
     Route: 048
  21. LASIX [Concomitant]
     Indication: OEDEMA
     Route: 048
  22. ZIAC [Concomitant]
     Route: 048
  23. PREMARIN [Concomitant]
  24. MULTIVITAMIN [Concomitant]
     Route: 048
  25. PROAIR HFA [Concomitant]
     Indication: DYSPNOEA
     Route: 055
  26. WELLBUTRIN [Concomitant]
     Route: 048
  27. TRAMADOL HCL [Concomitant]
     Indication: PAIN
     Route: 048

REACTIONS (3)
  - PNEUMONIA [None]
  - ACUTE RESPIRATORY FAILURE [None]
  - CHRONIC OBSTRUCTIVE PULMONARY DISEASE [None]
